FAERS Safety Report 5644160-3 (Version None)
Quarter: 2008Q1

REPORT INFORMATION
  Report Type: 
  Country: None (occurrence: None)
  Receive Date: 20080227
  Receipt Date: 20080219
  Transmission Date: 20080703
  Serious: Yes (Other)
  Sender: FDA-Public Use
  Company Number: S08-USA-00657-01

PATIENT
  Age: 45 Year
  Sex: Male
  Weight: 104.3273 kg

DRUGS (7)
  1. LEXAPRO [Suspect]
     Dosage: 20 MG QD;PO
     Route: 048
     Dates: start: 20040101
  2. FENTANYL [Suspect]
     Dosage: 25 MCG; ID
     Route: 026
     Dates: start: 20040101
  3. FENTANYL [Suspect]
  4. FENTANYL [Suspect]
     Indication: ARTHRITIS
     Dosage: 200 MCG; ID
     Route: 026
     Dates: start: 20040101, end: 20070501
  5. FENTANYL [Suspect]
     Indication: BACK PAIN
     Dosage: 200 MCG; ID
     Route: 026
     Dates: start: 20040101, end: 20070501
  6. FENTANYL [Suspect]
     Indication: ARTHRITIS
     Dosage: 100 MCG; ID
     Route: 026
     Dates: start: 20070501
  7. FENTANYL [Suspect]
     Indication: BACK PAIN
     Dosage: 100 MCG; ID
     Route: 026
     Dates: start: 20070501

REACTIONS (6)
  - ASTHENIA [None]
  - FATIGUE [None]
  - FEELING ABNORMAL [None]
  - HYPERHIDROSIS [None]
  - INFECTED SKIN ULCER [None]
  - SLEEP APNOEA SYNDROME [None]
